FAERS Safety Report 22736451 (Version 4)
Quarter: 2024Q4

REPORT INFORMATION
  Report Type: Spontaneous
  Country: JP (occurrence: JP)
  Receive Date: 20230721
  Receipt Date: 20241011
  Transmission Date: 20250114
  Serious: Yes (Hospitalization, Other)
  Sender: GLAXOSMITHKLINE
  Company Number: JP-GLAXOSMITHKLINE-JP2023JPN099107

PATIENT

DRUGS (2)
  1. LAMICTAL [Suspect]
     Active Substance: LAMOTRIGINE
     Indication: Bipolar disorder
     Dosage: UNK
  2. PREDNISOLONE [Concomitant]
     Active Substance: PREDNISOLONE
     Dosage: 15 MG, QD

REACTIONS (22)
  - Drug reaction with eosinophilia and systemic symptoms [Unknown]
  - Fulminant type 1 diabetes mellitus [Unknown]
  - Dermatitis exfoliative generalised [Unknown]
  - Cytomegalovirus infection reactivation [Unknown]
  - Rash [Recovering/Resolving]
  - Thirst [Unknown]
  - Polydipsia [Unknown]
  - Impaired insulin secretion [Unknown]
  - Macule [Unknown]
  - Skin exfoliation [Unknown]
  - Liver disorder [Recovered/Resolved]
  - Oral mucosa erosion [Unknown]
  - Pharyngeal erosion [Unknown]
  - Oral discomfort [Unknown]
  - Erythema [Recovered/Resolved]
  - Coating in mouth [Unknown]
  - Oral candidiasis [Recovering/Resolving]
  - Scab [Unknown]
  - Skin fissures [Unknown]
  - Skin erosion [Unknown]
  - Lymphadenopathy [Unknown]
  - Human herpesvirus 6 infection reactivation [Unknown]
